FAERS Safety Report 6840051-0 (Version None)
Quarter: 2010Q2

REPORT INFORMATION
  Report Type: 
  Country: None (occurrence: None)
  Receive Date: 20100629
  Receipt Date: 20100305
  Transmission Date: 20101027
  Serious: No
  Sender: FDA-Public Use
  Company Number: US-WYE-H13994710

PATIENT
  Age: 40 Year
  Sex: Female

DRUGS (3)
  1. PRISTIQ [Suspect]
     Indication: ANXIETY
     Dosage: 50 MG 1X PER 1 DAY, ORAL
     Route: 048
     Dates: start: 20100101, end: 20100201
  2. MACRODANTIN [Concomitant]
  3. IBUPROFEN [Concomitant]

REACTIONS (7)
  - ABDOMINAL PAIN UPPER [None]
  - CONSTIPATION [None]
  - CONTUSION [None]
  - NAUSEA [None]
  - OCULAR ICTERUS [None]
  - WEIGHT DECREASED [None]
  - YELLOW SKIN [None]
